FAERS Safety Report 4802941-X (Version None)
Quarter: 2005Q4

REPORT INFORMATION
  Report Type: 
  Country: None (occurrence: None)
  Receive Date: 20051013
  Receipt Date: 20051013
  Transmission Date: 20060501
  Serious: Yes (Hospitalization, Other)
  Sender: FDA-Public Use
  Company Number: USA0508106835

PATIENT
  Age: 62 Year
  Sex: Female

DRUGS (3)
  1. FORTEO [Suspect]
     Indication: BONE DISORDER
     Dates: start: 20050601
  2. PAIN MEDICATION [Concomitant]
  3. SULFA [Concomitant]

REACTIONS (9)
  - CONSTIPATION [None]
  - HEPATITIS [None]
  - INJECTION SITE ERYTHEMA [None]
  - MALAISE [None]
  - ORAL INTAKE REDUCED [None]
  - PHARMACEUTICAL PRODUCT COMPLAINT [None]
  - RASH [None]
  - VOMITING [None]
  - WEIGHT DECREASED [None]
